FAERS Safety Report 4512455-2 (Version None)
Quarter: 2004Q4

REPORT INFORMATION
  Report Type: 
  Country: None (occurrence: None)
  Receive Date: 20041008
  Receipt Date: 20040618
  Transmission Date: 20050328
  Serious: No
  Sender: FDA-Public Use
  Company Number: 371656

PATIENT
  Age: 46 Year
  Sex: Male
  Weight: 102.5 kg

DRUGS (1)
  1. FUZEON [Suspect]
     Indication: DRUG USE FOR UNKNOWN INDICATION
     Dosage: 90 MG  2 PER DAY  SUBCUTANEOUS
     Route: 058
     Dates: start: 20030915

REACTIONS (1)
  - PNEUMOCYSTIS CARINII PNEUMONIA [None]
